FAERS Safety Report 8757579 (Version 1)
Quarter: 2012Q4

REPORT INFORMATION
  Report Type: 
  Country: US (occurrence: US)
  Receive Date: 20120828
  Receipt Date: 20120828
  Transmission Date: 20130627
  Serious: No
  Sender: FDA-Public Use
  Company Number: US-B.I. PHARMACEUTICALS,INC./RIDGEFIELD-2012-BP-20308BP

PATIENT
  Age: 60 Year
  Sex: Female

DRUGS (6)
  1. MICARDIS [Suspect]
  2. UNSPECIFIED HIGH BLOOD PRESSURE MEDICATION [Concomitant]
     Indication: HYPERTENSION
  3. AMBIEN [Concomitant]
  4. NIASPAN [Concomitant]
  5. SEROQUEL [Concomitant]
  6. BENADRYL [Concomitant]

REACTIONS (3)
  - Pruritus [Unknown]
  - Headache [Unknown]
  - Pollakiuria [Unknown]
